FAERS Safety Report 16557708 (Version 1)
Quarter: 2019Q3

REPORT INFORMATION
  Report Type: Spontaneous
  Country: US (occurrence: US)
  Receive Date: 20190711
  Receipt Date: 20190711
  Transmission Date: 20191004
  Serious: Yes (Hospitalization, Other)
  Sender: FDA-Public Use
  Company Number: US-AUROBINDO-AUR-APL-2019-038412

PATIENT

DRUGS (1)
  1. AMPICILLIN [Suspect]
     Active Substance: AMPICILLIN
     Indication: ANTIBIOTIC THERAPY
     Dosage: 6000 MILLIGRAM (OVER A 5-H PERIOD, 35 MG/KG OR 2000 MG/DOSE EVERY 2 HOURS)
     Route: 065

REACTIONS (4)
  - Ureteric obstruction [Recovered/Resolved]
  - Haematuria [Recovered/Resolved]
  - Crystalluria [Recovered/Resolved]
  - Calculus bladder [Recovered/Resolved]
